FAERS Safety Report 14569483 (Version 2)
Quarter: 2018Q1

REPORT INFORMATION
  Report Type: Report from Study
  Country: FR (occurrence: FR)
  Receive Date: 20180224
  Receipt Date: 20180303
  Transmission Date: 20180509
  Serious: Yes (Other)
  Sender: FDA-Public Use
  Company Number: FR-ROCHE-2078932

PATIENT

DRUGS (1)
  1. PIRFENIDONE. [Suspect]
     Active Substance: PIRFENIDONE
     Indication: IDIOPATHIC PULMONARY FIBROSIS
     Route: 065

REACTIONS (9)
  - Decreased appetite [Unknown]
  - Nausea [Unknown]
  - Gastrointestinal disorder [Unknown]
  - Transaminases increased [Unknown]
  - Gastrooesophageal reflux disease [Unknown]
  - Weight decreased [Unknown]
  - Photosensitivity reaction [Unknown]
  - Toxic skin eruption [Unknown]
  - Diarrhoea [Unknown]
